FAERS Safety Report 5213717-6 (Version None)
Quarter: 2007Q1

REPORT INFORMATION
  Report Type: 
  Country: None (occurrence: None)
  Receive Date: 20070119
  Receipt Date: 20070109
  Transmission Date: 20070707
  Serious: Yes (Other)
  Sender: FDA-Public Use
  Company Number: US-PFIZER INC-2007003058

PATIENT
  Sex: Female

DRUGS (9)
  1. ZITHROMAX [Suspect]
     Indication: BRONCHITIS
     Dosage: FREQ:INTERVAL: EVERY DAY
     Route: 048
     Dates: start: 20070101, end: 20070105
  2. CHANTIX [Suspect]
     Indication: SMOKING CESSATION THERAPY
     Route: 048
  3. ADVAIR DISKUS 100/50 [Concomitant]
  4. SPIRIVA [Concomitant]
  5. FLONASE [Concomitant]
  6. PANMIST JR [Concomitant]
  7. ALLEGRA [Concomitant]
  8. ESTRADIOL [Concomitant]
  9. MONTELUKAST SODIUM [Concomitant]

REACTIONS (6)
  - BRONCHITIS [None]
  - FATIGUE [None]
  - HEADACHE [None]
  - INSOMNIA [None]
  - NIGHTMARE [None]
  - WEIGHT DECREASED [None]
